FAERS Safety Report 25214441 (Version 2)
Quarter: 2025Q2

REPORT INFORMATION
  Report Type: Spontaneous
  Country: TR (occurrence: TR)
  Receive Date: 20250418
  Receipt Date: 20250514
  Transmission Date: 20250716
  Serious: Yes (Death, Hospitalization)
  Sender: PFIZER
  Company Number: TR-PFIZER INC-202500082190

PATIENT
  Age: 67 Year
  Sex: Female
  Weight: 35 kg

DRUGS (3)
  1. XALKORI [Suspect]
     Active Substance: CRIZOTINIB
     Indication: Lung neoplasm malignant
     Dosage: 250 MG, 2X/DAY
     Route: 048
     Dates: start: 2024
  2. DELTACORTRIL [Concomitant]
     Active Substance: PREDNISOLONE
  3. PAROL [Concomitant]
     Active Substance: ACETAMINOPHEN
     Indication: Pain

REACTIONS (2)
  - Lung neoplasm malignant [Fatal]
  - Weight decreased [Unknown]

NARRATIVE: CASE EVENT DATE: 20250408
